FAERS Safety Report 23857203 (Version 1)
Quarter: 2024Q2

REPORT INFORMATION
  Report Type: Spontaneous
  Country: JP (occurrence: JP)
  Receive Date: 20240515
  Receipt Date: 20240515
  Transmission Date: 20240716
  Serious: Yes (Hospitalization, Other)
  Sender: FDA-Public Use
  Company Number: JP-STRIDES ARCOLAB LIMITED-2024SP002640

PATIENT
  Age: 36 Year
  Sex: Male
  Weight: 58 kg

DRUGS (13)
  1. TACROLIMUS [Suspect]
     Active Substance: TACROLIMUS
     Indication: Lupus nephritis
     Dosage: 3 MILLIGRAM, QD
     Route: 065
  2. PREDNISOLONE [Suspect]
     Active Substance: PREDNISOLONE
     Indication: Systemic lupus erythematosus
     Dosage: 30 MILLIGRAM
     Route: 065
  3. PREDNISOLONE [Suspect]
     Active Substance: PREDNISOLONE
     Indication: Lupus nephritis
     Dosage: 5 MILLIGRAM
     Route: 065
  4. PREDNISOLONE [Suspect]
     Active Substance: PREDNISOLONE
     Dosage: 30 MILLIGRAM (STEROID THERAPY, DOSE WAS INCREASED FROM 5 MG TO 30 MG)
     Route: 065
  5. PREDNISOLONE [Suspect]
     Active Substance: PREDNISOLONE
     Dosage: 5 MILLIGRAM (AFTER TRANSPLANT)
     Route: 065
  6. MYCOPHENOLATE MOFETIL [Suspect]
     Active Substance: MYCOPHENOLATE MOFETIL
     Indication: Lupus nephritis
     Dosage: 2000 MILLIGRAM, QD
     Route: 065
  7. MYCOPHENOLATE MOFETIL [Suspect]
     Active Substance: MYCOPHENOLATE MOFETIL
     Dosage: 1500 MILLIGRAM, QD
     Route: 065
  8. WARFARIN [Suspect]
     Active Substance: WARFARIN
     Indication: Lupus nephritis
     Dosage: UNK
     Route: 065
  9. WARFARIN [Suspect]
     Active Substance: WARFARIN
     Indication: Haemolytic uraemic syndrome
     Dosage: 2-3MG
     Route: 065
  10. WARFARIN [Suspect]
     Active Substance: WARFARIN
     Indication: Anticoagulant therapy
     Dosage: UNK
     Route: 065
  11. METHYLPREDNISOLONE [Suspect]
     Active Substance: METHYLPREDNISOLONE
     Indication: Lupus nephritis
     Dosage: 0.5 GRAM, QD
     Route: 065
  12. METHYLPREDNISOLONE [Suspect]
     Active Substance: METHYLPREDNISOLONE
     Indication: Haemolytic uraemic syndrome
     Dosage: 1 GRAM, QD
     Route: 065
  13. CYCLOPHOSPHAMIDE [Suspect]
     Active Substance: CYCLOPHOSPHAMIDE
     Indication: Lupus nephritis
     Dosage: 350 MILLIGRAM, QD (4 DOSES)
     Route: 042

REACTIONS (11)
  - Therapy non-responder [Unknown]
  - Drug ineffective [Unknown]
  - Condition aggravated [Unknown]
  - Renal transplant failure [Unknown]
  - Lupus nephritis [Recovered/Resolved]
  - Renal tubular injury [Unknown]
  - Haemolytic uraemic syndrome [Recovered/Resolved]
  - Cerebral infarction [Unknown]
  - Thrombotic microangiopathy [Unknown]
  - Treatment noncompliance [Unknown]
  - Off label use [Unknown]
